FAERS Safety Report 20255662 (Version 1)
Quarter: 2021Q4

REPORT INFORMATION
  Report Type: Spontaneous
  Country: US (occurrence: US)
  Receive Date: 20211230
  Receipt Date: 20211230
  Transmission Date: 20220303
  Serious: Yes (Death)
  Sender: FDA-Public Use
  Company Number: US-BAUSCH-BL-2021-042457

PATIENT
  Age: 49 Year
  Sex: Female

DRUGS (6)
  1. VENLAFAXINE HYDROCHLORIDE [Suspect]
     Active Substance: VENLAFAXINE HYDROCHLORIDE
     Indication: Product used for unknown indication
     Dosage: INGESTION
     Route: 048
  2. VENLAFAXINE HYDROCHLORIDE [Suspect]
     Active Substance: VENLAFAXINE HYDROCHLORIDE
     Indication: Product used for unknown indication
     Route: 051
  3. INSULIN ASPART [Suspect]
     Active Substance: INSULIN ASPART
     Indication: Product used for unknown indication
     Dosage: INGESTION
     Route: 048
  4. INSULIN ASPART [Suspect]
     Active Substance: INSULIN ASPART
     Route: 051
  5. INSULIN DETEMIR [Suspect]
     Active Substance: INSULIN DETEMIR
     Indication: Product used for unknown indication
     Dosage: INGESTION
     Route: 048
  6. INSULIN DETEMIR [Suspect]
     Active Substance: INSULIN DETEMIR
     Route: 051

REACTIONS (1)
  - Completed suicide [Fatal]
